FAERS Safety Report 14681885 (Version 2)
Quarter: 2019Q1

REPORT INFORMATION
  Report Type: Report from Study
  Country: US (occurrence: US)
  Receive Date: 20180326
  Receipt Date: 20190313
  Transmission Date: 20190417
  Serious: Yes (Hospitalization)
  Sender: FDA-Public Use
  Company Number: US-SHIRE-US201811051

PATIENT

DRUGS (1)
  1. HUMAN NORMAL IMMUNOGLOBULIN; LIQUID [Suspect]
     Active Substance: HUMAN IMMUNOGLOBULIN G
     Indication: SELECTIVE IGG SUBCLASS DEFICIENCY
     Route: 065

REACTIONS (6)
  - Pyrexia [Unknown]
  - Influenza like illness [Unknown]
  - Headache [Unknown]
  - Palpitations [Unknown]
  - Chills [Unknown]
  - Nausea [Unknown]
